FAERS Safety Report 9349057 (Version 2)
Quarter: 2013Q3

REPORT INFORMATION
  Report Type: Report from Study
  Country: US (occurrence: US)
  Receive Date: 20130614
  Receipt Date: 20130719
  Transmission Date: 20140515
  Serious: Yes (Hospitalization)
  Sender: FDA-Public Use
  Company Number: US-ABBOTT-13P-163-1100937-00

PATIENT
  Age: 60 Year
  Sex: Female

DRUGS (14)
  1. HUMIRA [Suspect]
     Indication: PSORIASIS
     Dates: start: 201202
  2. CHANTIX [Suspect]
     Indication: SMOKING CESSATION THERAPY
     Dates: start: 201304
  3. ZANAFLEX [Concomitant]
     Indication: MUSCLE SPASMS
     Dosage: 8MG IN AM, 4MG IN AFTERNOON, 4MG AT NIGHT
  4. ULTRAM [Concomitant]
     Indication: BACK PAIN
  5. NEURONTIN [Concomitant]
     Indication: BACK PAIN
  6. BACLOFEN [Concomitant]
     Indication: BACK PAIN
  7. BACLOFEN [Concomitant]
     Indication: MUSCLE SPASMS
  8. ELAVIL [Concomitant]
     Indication: SLEEP DISORDER
     Dosage: IN THE EVENING
  9. REMERON [Concomitant]
     Indication: INSOMNIA
     Dosage: AT NIGHT
  10. REMERON [Concomitant]
     Indication: PAIN
  11. LIPITOR [Concomitant]
     Indication: BLOOD CHOLESTEROL
  12. FOLIC ACID [Concomitant]
     Indication: BLOOD CHOLESTEROL ABNORMAL
  13. PERCOCET [Concomitant]
     Indication: BACK PAIN
  14. TRIAMCINOLONE [Concomitant]
     Indication: PSORIASIS
     Dosage: AT NIGHT
     Route: 061

REACTIONS (14)
  - Loss of consciousness [Not Recovered/Not Resolved]
  - Fall [Not Recovered/Not Resolved]
  - Wrist fracture [Not Recovered/Not Resolved]
  - Moaning [Not Recovered/Not Resolved]
  - Screaming [Not Recovered/Not Resolved]
  - Unevaluable event [Not Recovered/Not Resolved]
  - Pneumonia [Not Recovered/Not Resolved]
  - Feeling abnormal [Unknown]
  - Sleep disorder [Unknown]
  - Diarrhoea [Unknown]
  - Sinus congestion [Not Recovered/Not Resolved]
  - Nasal dryness [Not Recovered/Not Resolved]
  - Sinus headache [Not Recovered/Not Resolved]
  - Nasal congestion [Not Recovered/Not Resolved]
